FAERS Safety Report 25642249 (Version 2)
Quarter: 2025Q3

REPORT INFORMATION
  Report Type: Spontaneous
  Country: GB (occurrence: GB)
  Receive Date: 20250805
  Receipt Date: 20250813
  Transmission Date: 20251021
  Serious: Yes (Other)
  Sender: ACCORD
  Company Number: None

PATIENT
  Age: 54 Year
  Sex: Female
  Weight: 90 kg

DRUGS (5)
  1. ATORVASTATIN [Suspect]
     Active Substance: ATORVASTATIN
     Indication: Product used for unknown indication
  2. MORPHINE SULFATE [Concomitant]
     Active Substance: MORPHINE SULFATE
  3. PREGABALIN [Concomitant]
     Active Substance: PREGABALIN
  4. SERTRALINE [Concomitant]
     Active Substance: SERTRALINE HYDROCHLORIDE
  5. WARFARIN [Concomitant]
     Active Substance: WARFARIN

REACTIONS (8)
  - Medication error [Unknown]
  - Diarrhoea [Recovering/Resolving]
  - Abdominal distension [Recovering/Resolving]
  - Nausea [Recovering/Resolving]
  - Pain [Recovering/Resolving]
  - Abdominal pain [Recovering/Resolving]
  - Back pain [Unknown]
  - Hypotension [Unknown]

NARRATIVE: CASE EVENT DATE: 20250716
